FAERS Safety Report 19305022 (Version 6)
Quarter: 2022Q3

REPORT INFORMATION
  Report Type: Spontaneous
  Country: JP (occurrence: JP)
  Receive Date: 20210525
  Receipt Date: 20220714
  Transmission Date: 20221026
  Serious: Yes (Hospitalization)
  Sender: FDA-Public Use
  Company Number: JP-GSKNCCC-CASE-01213403_AE-44540

PATIENT

DRUGS (3)
  1. BENLYSTA [Suspect]
     Active Substance: BELIMUMAB
     Dosage: UNK
     Dates: start: 202104, end: 202104
  2. BENLYSTA [Suspect]
     Active Substance: BELIMUMAB
     Dosage: UNK
     Dates: start: 20210509
  3. PROGRAF [Suspect]
     Active Substance: TACROLIMUS
     Dosage: UNK

REACTIONS (10)
  - Physical deconditioning [Unknown]
  - Gastroenteritis [Unknown]
  - Inflammation [Unknown]
  - Condition aggravated [Unknown]
  - Malaise [Unknown]
  - Fatigue [Unknown]
  - Musculoskeletal stiffness [Unknown]
  - Abdominal discomfort [Unknown]
  - Device failure [Unknown]
  - Device infusion issue [Unknown]

NARRATIVE: CASE EVENT DATE: 20210503
